FAERS Safety Report 5654503-2 (Version None)
Quarter: 2008Q1

REPORT INFORMATION
  Report Type: 
  Country: None (occurrence: None)
  Receive Date: 20080307
  Receipt Date: 20080221
  Transmission Date: 20080703
  Serious: Yes (Other)
  Sender: FDA-Public Use
  Company Number: US-BAYER-200714737NA

PATIENT
  Age: 20 Year
  Sex: Female
  Weight: 49 kg

DRUGS (1)
  1. MIRENA [Suspect]
     Indication: CONTRACEPTION
     Dosage: TOTAL DAILY DOSE: 20 ?G
     Route: 015
     Dates: start: 20060607, end: 20071010

REACTIONS (4)
  - BLIGHTED OVUM [None]
  - IUD MIGRATION [None]
  - PELVIC PAIN [None]
  - PREGNANCY WITH CONTRACEPTIVE DEVICE [None]
